FAERS Safety Report 19657387 (Version 1)
Quarter: 2021Q3

REPORT INFORMATION
  Report Type: Spontaneous
  Country: US (occurrence: US)
  Receive Date: 20210804
  Receipt Date: 20210804
  Transmission Date: 20211014
  Serious: No
  Sender: FDA-Public Use
  Company Number: US-BIOGEN-2021BI01021959

PATIENT
  Age: 60 Year
  Sex: Female

DRUGS (2)
  1. TECFIDERA [Suspect]
     Active Substance: DIMETHYL FUMARATE
     Indication: MULTIPLE SCLEROSIS
     Route: 048
     Dates: start: 20210101, end: 202106
  2. COVID?19 VACCINE NOS. [Suspect]
     Active Substance: COVID-19 VACCINE NOS
     Indication: COVID-19 PROPHYLAXIS
     Route: 065
     Dates: start: 20210722

REACTIONS (8)
  - Dyspnoea [Unknown]
  - Urticaria [Unknown]
  - Abdominal pain upper [Unknown]
  - White blood cell count increased [Recovered/Resolved]
  - Visual impairment [Not Recovered/Not Resolved]
  - Vomiting [Unknown]
  - Flushing [Recovered/Resolved]
  - Vaccination complication [Not Recovered/Not Resolved]

NARRATIVE: CASE EVENT DATE: 202101
